FAERS Safety Report 5241793-3 (Version None)
Quarter: 2007Q1

REPORT INFORMATION
  Report Type: 
  Country: None (occurrence: None)
  Receive Date: 20070220
  Receipt Date: 20070205
  Transmission Date: 20070707
  Serious: Yes (Hospitalization)
  Sender: FDA-Public Use
  Company Number: US-SANOFI-SYNTHELABO-A03200701039

PATIENT
  Sex: Female
  Weight: 117.2 kg

DRUGS (12)
  1. PLAVIX [Suspect]
     Indication: DRUG USE FOR UNKNOWN INDICATION
     Dosage: UNK
     Route: 048
  2. HUMIDIFIED OXYGEN [Concomitant]
     Dosage: 1.5 L/MIN
     Route: 065
  3. LASIX [Concomitant]
     Dosage: UNK
     Route: 048
  4. ALLOPURINOL SODIUM [Concomitant]
     Dosage: UNK
     Route: 048
  5. ALBUTEROL [Concomitant]
     Dosage: UNK
     Route: 048
  6. SPIRIVA [Concomitant]
     Dosage: UNK
     Route: 048
  7. AMITRIPTYLINE HCL [Concomitant]
     Dosage: UNK
     Route: 048
  8. VYTORIN [Concomitant]
     Dosage: UNK
     Route: 048
  9. ACTOS [Concomitant]
     Dosage: UNK
     Route: 048
  10. LANTUS [Concomitant]
     Dosage: 15 UNITS IN THE MORNING
     Route: 058
  11. ASPIRIN [Suspect]
  12. RIMONABANT [Suspect]
     Dosage: UNK
     Route: 048
     Dates: start: 20061128

REACTIONS (3)
  - EPISTAXIS [None]
  - HYPERTENSION [None]
  - OBSTRUCTIVE CHRONIC BRONCHITIS WITH ACUTE EXACERBATION [None]
